FAERS Safety Report 6087963-6 (Version None)
Quarter: 2009Q1

REPORT INFORMATION
  Report Type: 
  Country: None (occurrence: None)
  Receive Date: 20090213
  Receipt Date: 20090207
  Transmission Date: 20090719
  Serious: Yes (Other)
  Sender: FDA-Public Use
  Company Number: CHPA2009US02945

PATIENT
  Age: 30 Month
  Sex: Female
  Weight: 15.4 kg

DRUGS (1)
  1. TRIAMINIC SRT [Suspect]
     Dosage: 1 TSP, ONCE/SINGLE, ORAL
     Route: 048
     Dates: start: 20090207, end: 20090207

REACTIONS (4)
  - DYSPNOEA [None]
  - HEART RATE INCREASED [None]
  - INCORRECT DOSE ADMINISTERED [None]
  - URTICARIA [None]
